FAERS Safety Report 4350407-6 (Version None)
Quarter: 2004Q2

REPORT INFORMATION
  Report Type: 
  Country: None (occurrence: None)
  Receive Date: 20040430
  Receipt Date: 20040426
  Transmission Date: 20050107
  Serious: Yes (Hospitalization)
  Sender: FDA-Public Use
  Company Number: 200414433GDDC

PATIENT
  Age: 84 Year
  Sex: Female

DRUGS (8)
  1. MINIRIN [Suspect]
     Indication: NOCTURIA
     Route: 048
     Dates: start: 20040114, end: 20040308
  2. ROFECOXIB [Concomitant]
     Route: 048
  3. ESTRIOL [Concomitant]
     Route: 048
  4. CITALOPRAM HYDROBROMIDE [Concomitant]
     Route: 048
  5. ATORVASTATIN [Concomitant]
     Route: 048
  6. NITRAZEPAM [Concomitant]
     Route: 048
  7. TOLTERODINE TARTRATE [Concomitant]
     Route: 048
  8. INSULIN [Concomitant]
     Route: 058

REACTIONS (1)
  - HYPONATRAEMIA [None]
